FAERS Safety Report 21410839 (Version 1)
Quarter: 2022Q4

REPORT INFORMATION
  Report Type: Spontaneous
  Country: US (occurrence: None)
  Receive Date: 20221004
  Receipt Date: 20221004
  Transmission Date: 20230113
  Serious: Yes (Other)
  Sender: FDA-Public Use
  Company Number: None

PATIENT
  Age: 65 Year
  Sex: Female

DRUGS (14)
  1. TRESIBA [Suspect]
     Active Substance: INSULIN DEGLUDEC
     Indication: Type 1 diabetes mellitus
     Dosage: OTHER QUANTITY : 1 INJECTION(S);?OTHER ROUTE : INJECTED VIA A SYRINGE;?
     Route: 050
  2. ENALAPRIL [Concomitant]
     Active Substance: ENALAPRIL
  3. AMLODIPINE BESYLATE [Concomitant]
     Active Substance: AMLODIPINE BESYLATE
  4. DexCom CGM [Concomitant]
  5. Freestyle Lite blood glucose monitor [Concomitant]
  6. BD Insulin syringes [Concomitant]
  7. Vitamins and Minerals: Zinc [Concomitant]
  8. VITAMIN D [Concomitant]
     Active Substance: VITAMIN D NOS
  9. VITAMIN B COMPLEX [Concomitant]
     Active Substance: CYANOCOBALAMIN\DEXPANTHENOL\NIACINAMIDE\PYRIDOXINE HYDROCHLORIDE\RIBOFLAVIN 5^-PHOSPHATE SODIUM\THIA
  10. IRON [Concomitant]
     Active Substance: IRON
  11. MAGNESIUM [Concomitant]
     Active Substance: MAGNESIUM
  12. CALCIUM [Concomitant]
     Active Substance: CALCIUM
  13. MIRALAX [Concomitant]
  14. COLACE [Concomitant]
     Active Substance: DOCUSATE SODIUM

REACTIONS (2)
  - Blood glucose increased [None]
  - Abdominal distension [None]

NARRATIVE: CASE EVENT DATE: 20220925
